FAERS Safety Report 7684986-8 (Version None)
Quarter: 2011Q3

REPORT INFORMATION
  Report Type: 
  Country: None (occurrence: None)
  Receive Date: 20110816
  Receipt Date: 20110808
  Transmission Date: 20111222
  Serious: Yes (Other)
  Sender: FDA-Public Use
  Company Number: JP-CEPHALON-2011002152

PATIENT
  Sex: Male
  Weight: 77 kg

DRUGS (11)
  1. ENTECAVIR [Concomitant]
     Dates: start: 20110112
  2. SULFAMETHOXAZOLE AND TRIMETHOPRIM [Concomitant]
     Dates: start: 20110127
  3. FLUCONAZOLE [Concomitant]
     Dates: start: 20110127, end: 20110131
  4. BENDAMUSTINE HCL [Suspect]
     Indication: MANTLE CELL LYMPHOMA
     Route: 042
     Dates: start: 20110119, end: 20110120
  5. BENDAMUSTINE HCL [Suspect]
     Route: 042
     Dates: start: 20110215, end: 20110216
  6. PITAVASTATIN CALCIUM [Concomitant]
  7. BENDAMUSTINE HCL [Suspect]
     Route: 042
     Dates: start: 20110315, end: 20110316
  8. ACYCLOVIR [Concomitant]
     Dates: start: 20110216
  9. BENDAMUSTINE HCL [Suspect]
     Route: 042
  10. RITUXIMAB [Concomitant]
     Dates: start: 20110117, end: 20110314
  11. GRANISETRON HYDROCHLORIDE [Concomitant]
     Dates: start: 20110119, end: 20110317

REACTIONS (9)
  - C-REACTIVE PROTEIN INCREASED [None]
  - LYMPHOCYTE COUNT DECREASED [None]
  - THROMBOCYTOPENIA [None]
  - NEUTROPHIL COUNT DECREASED [None]
  - WHITE BLOOD CELL COUNT DECREASED [None]
  - DECREASED APPETITE [None]
  - PLATELET COUNT DECREASED [None]
  - BLOOD BETA-D-GLUCAN INCREASED [None]
  - HYPOALBUMINAEMIA [None]
